FAERS Safety Report 12156653 (Version 1)
Quarter: 2016Q1

REPORT INFORMATION
  Report Type: Spontaneous
  Country: US (occurrence: US)
  Receive Date: 20160307
  Receipt Date: 20160307
  Transmission Date: 20160526
  Serious: Yes (Other)
  Sender: FDA-Public Use
  Company Number: US-AKORN PHARMACEUTICALS-2016AKN00128

PATIENT
  Sex: Female

DRUGS (6)
  1. MYORISAN [Suspect]
     Active Substance: ISOTRETINOIN
     Dosage: 40 MG, 1X/DAY
     Dates: start: 20160125, end: 20160223
  2. AMATRICTOLINE [Concomitant]
  3. LEXAPRO [Concomitant]
     Active Substance: ESCITALOPRAM OXALATE
  4. CYCLOBENZAPRINE [Concomitant]
     Active Substance: CYCLOBENZAPRINE
  5. DEPO SHOT (PROVERA) [Concomitant]
  6. CLONAVETAM [Concomitant]

REACTIONS (1)
  - Exposure during pregnancy [Unknown]
